FAERS Safety Report 6033220-3 (Version None)
Quarter: 2009Q1

REPORT INFORMATION
  Report Type: 
  Country: None (occurrence: None)
  Receive Date: 20090109
  Receipt Date: 20090102
  Transmission Date: 20090719
  Serious: Yes (Hospitalization)
  Sender: FDA-Public Use
  Company Number: US-ELI_LILLY_AND_COMPANY-US200901000076

PATIENT
  Sex: Male
  Weight: 142.86 kg

DRUGS (16)
  1. BYETTA [Suspect]
     Indication: TYPE 2 DIABETES MELLITUS
     Dosage: 5 UG, 2/D
     Route: 058
     Dates: start: 20060101, end: 20060101
  2. BYETTA [Interacting]
     Dosage: 10 UG, 2/D
     Route: 058
     Dates: start: 20060101, end: 20071201
  3. BYETTA [Interacting]
     Dosage: 5 UG, 2/D
     Route: 058
     Dates: start: 20071201, end: 20071201
  4. BYETTA [Interacting]
     Dosage: 10 UG, 2/D
     Route: 058
     Dates: start: 20071201, end: 20081201
  5. NOVOLOG [Concomitant]
     Indication: TYPE 2 DIABETES MELLITUS
     Dosage: 15 U, 2/D
     Route: 058
     Dates: start: 20081201
  6. NOVOLOG [Concomitant]
     Dosage: 20 U, EACH EVENING
     Route: 058
     Dates: start: 20081201
  7. INSULATARD NPH HUMAN [Concomitant]
     Indication: TYPE 2 DIABETES MELLITUS
     Dosage: 30 U, EACH EVENING
     Route: 058
     Dates: start: 20081201
  8. LANTUS [Concomitant]
     Indication: TYPE 2 DIABETES MELLITUS
     Dosage: UNK, UNKNOWN
     Dates: end: 20081201
  9. LISINOPRIL [Concomitant]
     Indication: PROPHYLAXIS
     Dosage: UNK, 2/D
     Route: 048
  10. METOPROLOL TARTRATE [Concomitant]
     Indication: HYPERTENSION
     Dosage: UNK, 2/D
     Route: 048
  11. DICYCLOMINE [Concomitant]
     Indication: IRRITABLE BOWEL SYNDROME
     Dosage: 10 MG, AS NEEDED
     Route: 048
     Dates: start: 20030101
  12. ALLEGRA [Concomitant]
     Indication: SEASONAL ALLERGY
     Dosage: UNK, DAILY (1/D)
     Route: 048
  13. MULTI-VITAMIN [Concomitant]
     Indication: GENERAL PHYSICAL CONDITION
     Dosage: UNK, DAILY (1/D)
     Route: 048
  14. NEXIUM [Concomitant]
     Dosage: UNK, DAILY (1/D)
     Route: 048
  15. BUMEX [Concomitant]
     Indication: OEDEMA
     Dosage: 5 MG, DAILY (1/D)
     Route: 048
  16. ZYLOPRIM [Concomitant]
     Indication: GOUT
     Dosage: UNK, DAILY (1/D)
     Route: 048

REACTIONS (10)
  - ABDOMINAL PAIN [None]
  - ARTHRALGIA [None]
  - ARTHROPATHY [None]
  - CONSTIPATION [None]
  - DRUG INTERACTION [None]
  - EAR PRURITUS [None]
  - INTESTINAL FUNCTIONAL DISORDER [None]
  - MALAISE [None]
  - SKIN DISORDER [None]
  - WEIGHT DECREASED [None]
